FAERS Safety Report 5464038-8 (Version None)
Quarter: 2007Q3

REPORT INFORMATION
  Report Type: 
  Country: None (occurrence: None)
  Receive Date: 20070921
  Receipt Date: 20070913
  Transmission Date: 20080115
  Serious: Yes (Hospitalization)
  Sender: FDA-Public Use
  Company Number: DE-BAYER-200711023BVD

PATIENT
  Age: 82 Year
  Sex: Female
  Weight: 42 kg

DRUGS (4)
  1. AVELOX [Suspect]
     Indication: CHRONIC OBSTRUCTIVE PULMONARY DISEASE
     Route: 048
     Dates: start: 20070614, end: 20070620
  2. MTX [Interacting]
     Indication: RHEUMATOID ARTHRITIS
     Route: 048
  3. SULFASALAZIN [Concomitant]
     Indication: RHEUMATOID ARTHRITIS
     Dosage: AS USED: 500 MG
  4. PREDNISOLUT [Concomitant]

REACTIONS (7)
  - ANAEMIA [None]
  - FEBRILE NEUTROPENIA [None]
  - GASTROINTESTINAL HAEMORRHAGE [None]
  - MUCOSAL HAEMORRHAGE [None]
  - PANCYTOPENIA [None]
  - PETECHIAE [None]
  - THROMBOCYTOPENIA [None]
